FAERS Safety Report 17644111 (Version 1)
Quarter: 2020Q2

REPORT INFORMATION
  Report Type: Spontaneous
  Country: US (occurrence: US)
  Receive Date: 20200408
  Receipt Date: 20200408
  Transmission Date: 20200713
  Serious: No
  Sender: FDA-Public Use
  Company Number: US-MYLANLABS-2020M1033322

PATIENT
  Sex: Female

DRUGS (5)
  1. CLONIDINE. [Suspect]
     Active Substance: CLONIDINE
     Indication: PRODUCT USED FOR UNKNOWN INDICATION
     Dosage: 0.1 MILLIGRAM
     Route: 048
  2. BYSTOLIC [Concomitant]
     Active Substance: NEBIVOLOL HYDROCHLORIDE
     Dosage: UNK MILLIGRAM
  3. ZETIA [Concomitant]
     Active Substance: EZETIMIBE
     Dosage: UNK MILLIGRAM
  4. LISINOPRIL. [Suspect]
     Active Substance: LISINOPRIL
     Indication: PRODUCT USED FOR UNKNOWN INDICATION
     Dosage: 10 MILLIGRAM
  5. BUSPAR [Concomitant]
     Active Substance: BUSPIRONE HYDROCHLORIDE
     Dosage: UNK MILLIGRAM

REACTIONS (2)
  - Malaise [Not Recovered/Not Resolved]
  - Regurgitation [Not Recovered/Not Resolved]
